FAERS Safety Report 15597972 (Version 2)
Quarter: 2018Q4

REPORT INFORMATION
  Report Type: Spontaneous
  Country: US (occurrence: US)
  Receive Date: 20181108
  Receipt Date: 20181204
  Transmission Date: 20190205
  Serious: No
  Sender: FDA-Public Use
  Company Number: US-PFIZER INC-2018449567

PATIENT
  Sex: Male
  Weight: 90.7 kg

DRUGS (1)
  1. LYRICA [Suspect]
     Active Substance: PREGABALIN
     Indication: NEURALGIA
     Dosage: 75 MG, THRICE DAILY
     Route: 048
     Dates: start: 2018

REACTIONS (2)
  - Alcohol test false positive [Unknown]
  - Off label use [Unknown]

NARRATIVE: CASE EVENT DATE: 2018
